FAERS Safety Report 16594413 (Version 1)
Quarter: 2019Q3

REPORT INFORMATION
  Report Type: Spontaneous
  Country: CH (occurrence: CH)
  Receive Date: 20190718
  Receipt Date: 20190718
  Transmission Date: 20191004
  Serious: Yes (Hospitalization, Other)
  Sender: FDA-Public Use
  Company Number: CH-PFIZER INC-2019300134

PATIENT
  Age: 29 Year
  Sex: Female

DRUGS (3)
  1. ZOLPIDEM [Suspect]
     Active Substance: ZOLPIDEM TARTRATE
     Dosage: 60 MG, SINGLE
     Route: 048
     Dates: start: 20190520, end: 20190520
  2. SERTRALINE HCL [Suspect]
     Active Substance: SERTRALINE HYDROCHLORIDE
     Dosage: 100 MG, SINGLE
  3. TEMESTA (LORAZEPAM) [Suspect]
     Active Substance: LORAZEPAM
     Dosage: 3 MG, SINGLE
     Dates: start: 20190520, end: 20190520

REACTIONS (5)
  - Disorientation [Unknown]
  - Suicidal ideation [Unknown]
  - Coma scale abnormal [Unknown]
  - Somnolence [Recovered/Resolved]
  - Poisoning [Recovered/Resolved]

NARRATIVE: CASE EVENT DATE: 201905
